FAERS Safety Report 8816294 (Version 1)
Quarter: 2012Q4

REPORT INFORMATION
  Report Type: Spontaneous
  Country: US (occurrence: None)
  Receive Date: 20120927
  Receipt Date: 20120927
  Transmission Date: 20130627
  Serious: Yes (Hospitalization)
  Sender: FDA-Public Use
  Company Number: None

PATIENT
  Age: 67 Year
  Sex: Male
  Weight: 166.02 kg

DRUGS (1)
  1. VICTOZA [Suspect]
     Indication: TYPE 2 DIABETES MELLITUS
     Dosage: 1.2mg Once Daily sq
     Route: 058
     Dates: start: 20120709, end: 20120817

REACTIONS (4)
  - Abdominal pain lower [None]
  - Pancreatitis acute [None]
  - Renal impairment [None]
  - Condition aggravated [None]
